FAERS Safety Report 8486634 (Version 3)
Quarter: 2012Q4

REPORT INFORMATION
  Report Type: 
  Country: US (occurrence: US)
  Receive Date: 20120402
  Receipt Date: 20120921
  Transmission Date: 20130627
  Serious: Yes (Hospitalization, Other)
  Sender: FDA-Public Use
  Company Number: US-BAYER-2012-028733

PATIENT
  Age: 23 Year
  Sex: Female
  Weight: 74.83 kg

DRUGS (27)
  1. YAZ [Suspect]
     Indication: CONTRACEPTION
     Dosage: UNK
     Dates: start: 200908, end: 200912
  2. YAZ [Suspect]
     Indication: ACNE
  3. LORTAB [Concomitant]
     Dosage: 500-5mg 1 tablet every 4-6 hours
     Route: 048
     Dates: start: 20091102, end: 20091108
  4. ZOFRAN [Concomitant]
     Dosage: 4 mg, 1 tablet every 4-6 hours
     Route: 048
     Dates: start: 20091102, end: 20091108
  5. LEXAPRO [Concomitant]
     Dosage: 10 mg, QD
     Route: 048
     Dates: start: 20091102, end: 20091108
  6. ADVAIR [Concomitant]
     Dosage: 50-100mcg
     Dates: start: 20091102, end: 20091108
  7. METROGEL [Concomitant]
     Dosage: 0.75 %, UNK
     Route: 067
     Dates: start: 20091102, end: 20091108
  8. CHLORDIAZEPOXIDE [Concomitant]
     Dosage: 25 mg, UNK
     Dates: start: 20091103
  9. PROMETHAZINE [Concomitant]
     Dosage: 25 mg, UNK
     Route: 054
     Dates: start: 20091103
  10. SUBOXONE [Concomitant]
     Dosage: 8mg-2mg
     Dates: start: 20091108, end: 20091112
  11. VENTOLIN HFA [Concomitant]
     Dosage: 90 ?g, UNK
     Dates: start: 20091108
  12. RISPERIDONE [Concomitant]
     Dosage: 2 mg, UNK
     Dates: start: 20091109
  13. BUPRENORPHINE HYDROCHLORIDE/NALOXONE HYDROCHLORIDE [Concomitant]
     Dosage: 8mg-2mg 0.5 tablet bid
     Route: 060
     Dates: start: 20091108
  14. PHENERGAN [Concomitant]
     Dosage: 25 mg, 1 tablet every 6-8 hours as needed
     Route: 048
     Dates: start: 20091108
  15. CELEXA [Concomitant]
     Dosage: 40 mg, daily
     Route: 048
     Dates: start: 20091108
  16. FLAGYL [Concomitant]
     Dosage: 500 mg, every 6 hours
     Dates: start: 20091108, end: 20091113
  17. ALBUTEROL [Concomitant]
     Dosage: 2 puff(s), [every] 6 hours as needed
  18. CITALOPRAM HYDROBROMIDE [Concomitant]
     Dosage: 40 mg, UNK
     Dates: start: 20091108, end: 20091209
  19. METHOCARBAMOL [Concomitant]
     Dosage: 750 mg, UNK
     Dates: start: 20091110
  20. ZOLOFT [Concomitant]
     Dosage: 100 mg, QD
     Route: 048
  21. INDOMETHACIN [Concomitant]
     Dosage: 50 mg, TID PRN
  22. TRAZODONE [Concomitant]
  23. ACHIA [Concomitant]
  24. PERCOCET [Concomitant]
     Dosage: 15 mg, UNK
  25. MS CONTIN [Concomitant]
     Dosage: 15 mg, 2-3 daily
  26. XANAX [Concomitant]
  27. MORPHINE [Concomitant]

REACTIONS (12)
  - Gallbladder disorder [None]
  - Cholecystitis chronic [None]
  - Nausea [None]
  - Abdominal pain [None]
  - Injury [None]
  - Pain [None]
  - Asthenia [None]
  - Anxiety [None]
  - Emotional distress [None]
  - Mental disorder [None]
  - Drug dependence [None]
  - Bipolar disorder [None]
